FAERS Safety Report 5141347-3 (Version None)
Quarter: 2006Q4

REPORT INFORMATION
  Report Type: 
  Country: None (occurrence: None)
  Receive Date: 20061030
  Receipt Date: 20061030
  Transmission Date: 20070319
  Serious: No
  Sender: FDA-Public Use
  Company Number: None

PATIENT

DRUGS (2)
  1. RESTORIL [Suspect]
     Dosage: CAPSULE
  2. ZESTRIL [Suspect]
     Dosage: TABLET

REACTIONS (7)
  - DIZZINESS [None]
  - DRUG DISPENSING ERROR [None]
  - MALAISE [None]
  - MEDICATION ERROR [None]
  - NAUSEA [None]
  - VOMITING [None]
  - WRONG DRUG ADMINISTERED [None]
